FAERS Safety Report 7959885-4 (Version None)
Quarter: 2011Q4

REPORT INFORMATION
  Report Type: 
  Country: None (occurrence: None)
  Receive Date: 20111206
  Receipt Date: 20111128
  Transmission Date: 20120403
  Serious: Yes (Hospitalization)
  Sender: FDA-Public Use
  Company Number: PHHY2011IT104646

PATIENT
  Sex: Female

DRUGS (4)
  1. MIRTAZAPINE [Concomitant]
     Dosage: UNK
  2. LEVOFLOXACIN [Suspect]
     Indication: PNEUMONIA
     Dosage: 500 MG, QD
     Route: 048
     Dates: start: 20111116, end: 20111122
  3. DESOGESTREL AND ETHINYL ESTRADIOL [Concomitant]
     Dosage: UNK
  4. AZITHROMYCIN [Suspect]
     Indication: PNEUMONIA
     Dosage: 500 MG, QD
     Route: 048
     Dates: start: 20111116, end: 20111122

REACTIONS (4)
  - CENTRAL NERVOUS SYSTEM LESION [None]
  - APHASIA [None]
  - CONFUSIONAL STATE [None]
  - ISCHAEMIC STROKE [None]
